FAERS Safety Report 13423246 (Version 1)
Quarter: 2017Q2

REPORT INFORMATION
  Report Type: Spontaneous
  Country: BG (occurrence: BG)
  Receive Date: 20170410
  Receipt Date: 20170410
  Transmission Date: 20170830
  Serious: Yes (Hospitalization)
  Sender: FDA-Public Use
  Company Number: BG-BAYER-2017-061248

PATIENT
  Age: 81 Year
  Sex: Male
  Weight: 108 kg

DRUGS (4)
  1. DIGOXIN. [Concomitant]
     Active Substance: DIGOXIN
     Dosage: UNK
  2. DIAPREL [Concomitant]
     Active Substance: GLICLAZIDE
     Dosage: 60 MG, UNK
  3. TORASEMIDE [Concomitant]
     Active Substance: TORSEMIDE
     Dosage: 10 MG, UNK
  4. ASPIRIN PROTECT 100 MG [Suspect]
     Active Substance: ASPIRIN
     Dosage: 100 MG, UNK

REACTIONS (9)
  - Atrial fibrillation [None]
  - Albuminuria [None]
  - Pulmonary oedema [Recovered/Resolved]
  - Peripheral swelling [Recovering/Resolving]
  - Urinary nitrogen increased [None]
  - General physical health deterioration [Recovering/Resolving]
  - Anaemia [None]
  - Hypoglycaemia [Recovered/Resolved]
  - Bradyarrhythmia [None]
